FAERS Safety Report 6209460-7 (Version None)
Quarter: 2009Q2

REPORT INFORMATION
  Report Type: 
  Country: None (occurrence: None)
  Receive Date: 20090601
  Receipt Date: 20081110
  Transmission Date: 20091009
  Serious: No
  Sender: FDA-Public Use
  Company Number: A0755782A

PATIENT
  Age: 60 Year
  Sex: Female

DRUGS (2)
  1. AUGMENTIN '125' [Suspect]
     Dosage: 875MG TWICE PER DAY
     Route: 048
     Dates: start: 20081101, end: 20081106
  2. VITAMINS [Concomitant]

REACTIONS (2)
  - DIARRHOEA [None]
  - RASH GENERALISED [None]
